FAERS Safety Report 4473847-3 (Version None)
Quarter: 2004Q4

REPORT INFORMATION
  Report Type: 
  Country: None (occurrence: None)
  Receive Date: 20041008
  Receipt Date: 20041008
  Transmission Date: 20050328
  Serious: Yes (Other)
  Sender: FDA-Public Use
  Company Number: None

PATIENT
  Age: 19 Year
  Sex: Female
  Weight: 70 kg

DRUGS (1)
  1. GABITRIL [Suspect]
     Indication: SCHIZOAFFECTIVE DISORDER
     Dosage: 4 MG DAILY/ 4-6 WEEKS

REACTIONS (1)
  - AGGRESSION [None]
